FAERS Safety Report 7407041-0 (Version None)
Quarter: 2011Q2

REPORT INFORMATION
  Report Type: 
  Country: None (occurrence: None)
  Receive Date: 20110411
  Receipt Date: 20110325
  Transmission Date: 20111010
  Serious: Yes (Hospitalization, Other)
  Sender: FDA-Public Use
  Company Number: JP-AMGEN-JPNSP2011005701

PATIENT
  Age: 51 Year
  Sex: Female
  Weight: 48.6 kg

DRUGS (8)
  1. VOLTAREN [Concomitant]
     Indication: ANALGESIC THERAPY
     Dosage: 1 T
  2. ISONIAZID [Concomitant]
     Indication: ANTIBIOTIC PROPHYLAXIS
     Dosage: 2 T
     Dates: start: 20110118, end: 20110126
  3. FOSAMAX [Concomitant]
     Indication: OSTEOPOROSIS
     Dosage: UNK
  4. NSAIDS [Concomitant]
     Indication: RHEUMATOID ARTHRITIS
     Dosage: UNK
  5. OMEPRAL [Concomitant]
     Indication: GASTRIC ULCER
     Dosage: 1 T
  6. ENBREL [Suspect]
     Indication: RHEUMATOID ARTHRITIS
     Dosage: 25 MG, WEEKLY
     Route: 058
     Dates: start: 20110119, end: 20110126
  7. PREDNISOLONE [Concomitant]
     Indication: RHEUMATOID ARTHRITIS
     Dosage: 1.5 T
     Route: 048
  8. RHEUMATREX [Concomitant]
     Indication: RHEUMATOID ARTHRITIS
     Dosage: 6 MG, WEEKLY
     Route: 048
     Dates: start: 20020101

REACTIONS (3)
  - CHILLS [None]
  - HYPERSENSITIVITY [None]
  - FEELING ABNORMAL [None]
